FAERS Safety Report 19560713 (Version 1)
Quarter: 2021Q3

REPORT INFORMATION
  Report Type: Spontaneous
  Country: US (occurrence: US)
  Receive Date: 20210715
  Receipt Date: 20210715
  Transmission Date: 20211014
  Serious: Yes (Other)
  Sender: FDA-Public Use
  Company Number: US-TITAN PHARMACEUTICALS-2021TAN00052

PATIENT
  Sex: Male

DRUGS (2)
  1. PROBUPHINE [Suspect]
     Active Substance: BUPRENORPHINE HYDROCHLORIDE
     Dosage: UNK
  2. PROBUPHINE [Suspect]
     Active Substance: BUPRENORPHINE HYDROCHLORIDE
     Dosage: 1 REMAINING IMPLANT, SMALL PIECE

REACTIONS (2)
  - Dependence [None]
  - Complication of device removal [Not Recovered/Not Resolved]
